FAERS Safety Report 4328630-6 (Version None)
Quarter: 2004Q1

REPORT INFORMATION
  Report Type: 
  Country: None (occurrence: None)
  Receive Date: 20040323
  Receipt Date: 20040305
  Transmission Date: 20041129
  Serious: Yes (Death)
  Sender: FDA-Public Use
  Company Number: 235745

PATIENT
  Sex: Male

DRUGS (2)
  1. NOVOSEVEN [Suspect]
     Indication: POST PROCEDURAL HAEMORRHAGE
     Dosage: 4.8 MG, SINGLE, INTRAVENOUS
     Route: 042
     Dates: start: 20040223, end: 20040223
  2. PLASMA [Concomitant]

REACTIONS (2)
  - DRUG EFFECT DECREASED [None]
  - HAEMORRHAGE [None]
